FAERS Safety Report 4431113-6 (Version None)
Quarter: 2004Q3

REPORT INFORMATION
  Report Type: 
  Country: None (occurrence: None)
  Receive Date: 20040817
  Receipt Date: 20040802
  Transmission Date: 20050211
  Serious: Yes (Hospitalization)
  Sender: FDA-Public Use
  Company Number: 2004GB01873

PATIENT
  Age: 56 Year
  Sex: Female

DRUGS (3)
  1. BUDESONIDE [Suspect]
     Indication: APHTHOUS STOMATITIS
     Dosage: 100 UG IH
     Route: 055
     Dates: start: 20040303, end: 20040311
  2. PRAVASTATIN [Concomitant]
  3. MEBEVERINE [Concomitant]

REACTIONS (2)
  - PRURITUS [None]
  - SWELLING FACE [None]
